FAERS Safety Report 5259748-1 (Version None)
Quarter: 2007Q1

REPORT INFORMATION
  Report Type: 
  Country: None (occurrence: None)
  Receive Date: 20061117
  Receipt Date: 20060707
  Transmission Date: 20070707
  Serious: Yes (Other)
  Sender: FDA-Public Use
  Company Number: US-JNJFOC-20060504727

PATIENT
  Age: 73 Year
  Sex: Female
  Weight: 57.1532 kg

DRUGS (2)
  1. LEVAQUIN [Suspect]
     Indication: ASTHMA
  2. LEVAQUIN [Suspect]
     Indication: BRONCHITIS

REACTIONS (1)
  - VASCULITIS [None]
